FAERS Safety Report 12505721 (Version 1)
Quarter: 2016Q2

REPORT INFORMATION
  Report Type: Spontaneous
  Country: US (occurrence: US)
  Receive Date: 20160628
  Receipt Date: 20160628
  Transmission Date: 20160815
  Serious: Yes (Other)
  Sender: FDA-Public Use
  Company Number: US-ASTRAZENECA-2016SE68402

PATIENT
  Age: 73 Year
  Sex: Female

DRUGS (1)
  1. FASLODEX [Suspect]
     Active Substance: FULVESTRANT
     Indication: BREAST CANCER
     Dosage: 250.0MG UNKNOWN
     Route: 030
     Dates: start: 20160322, end: 20160322

REACTIONS (4)
  - Dyspnoea [Unknown]
  - Dizziness [Unknown]
  - Hypersensitivity [Unknown]
  - Feeling hot [Unknown]

NARRATIVE: CASE EVENT DATE: 20160322
